FAERS Safety Report 9788224 (Version 3)
Quarter: 2014Q1

REPORT INFORMATION
  Report Type: Report from Study
  Country: JP (occurrence: JP)
  Receive Date: 20131230
  Receipt Date: 20140227
  Transmission Date: 20141002
  Serious: Yes (Death, Other)
  Sender: FDA-Public Use
  Company Number: JP-TAKEDA-2013TJP003096

PATIENT
  Age: 77 Year
  Sex: Male
  Weight: 68.7 kg

DRUGS (8)
  1. ALOGLIPTIN [Suspect]
     Indication: TYPE 2 DIABETES MELLITUS
     Dosage: 25 MG, QD
     Route: 048
     Dates: start: 20120619, end: 20120828
  2. TS-1 /01593501/ [Suspect]
     Dosage: 100 MG, 1 DAYS
     Route: 048
     Dates: start: 20120228, end: 20120828
  3. TS-1 /01593501/ [Suspect]
     Dosage: 50 MG, 1 DAYS
     Route: 048
     Dates: start: 20120829
  4. AMARYL [Concomitant]
     Indication: TYPE 2 DIABETES MELLITUS
     Dosage: 2 MG, 1 DAYS
     Route: 048
     Dates: end: 20120619
  5. AMARYL [Concomitant]
     Dosage: 1 MG, 1 DAYS
     Route: 048
     Dates: start: 20120620
  6. AMOBAN [Concomitant]
     Dosage: UNK UNK, PRN
     Route: 048
     Dates: start: 20070713
  7. HALCION [Concomitant]
     Dosage: UNK UNK, PRN
     Route: 048
     Dates: start: 20120117
  8. GEBEN [Concomitant]
     Indication: SKIN EROSION
     Dosage: UNK UNK, PRN
     Route: 062
     Dates: start: 20120731

REACTIONS (2)
  - Malignant ascites [Fatal]
  - Decreased appetite [Recovered/Resolved]
